FAERS Safety Report 8164081-4 (Version None)
Quarter: 2012Q1

REPORT INFORMATION
  Report Type: 
  Country: None (occurrence: None)
  Receive Date: 20120221
  Receipt Date: 20120208
  Transmission Date: 20120608
  Serious: Yes (Other)
  Sender: FDA-Public Use
  Company Number: 1000026256

PATIENT
  Age: 61 Year
  Sex: Female

DRUGS (5)
  1. LIPANTHYL (FENOFIBRATE)(FENOFIBRATE) [Concomitant]
  2. FOSFOMYCIN(FOSFOMYCIN TROMETAMOL)(3 GRAM, GRANULATE) [Suspect]
     Indication: URINARY TRACT INFECTION
     Dosage: (3 GM,ONCE),ORAL
     Route: 048
     Dates: start: 20110901, end: 20110901
  3. FOSFOMYCIN(FOSFOMYCIN TROMETAMOL)(3 GRAM, GRANULATE) [Suspect]
     Indication: URINARY TRACT INFECTION
     Dosage: (3 GM,ONCE),ORAL
     Route: 048
     Dates: start: 20110701, end: 20110701
  4. ALDACTAZINE (ALTIZIDE, SPIRONOLACTONE) (ALTIZIDE, SPIRONOLACTONE) [Concomitant]
  5. STILNOX (ZOLPIDEM TARTRATE)(ZOLPIDEM TARTRATE) [Concomitant]

REACTIONS (1)
  - PANCREATITIS [None]
